FAERS Safety Report 21545558 (Version 2)
Quarter: 2022Q4

REPORT INFORMATION
  Report Type: Report from Study
  Country: BR (occurrence: BR)
  Receive Date: 20221103
  Receipt Date: 20221117
  Transmission Date: 20230113
  Serious: Yes (Death, Other)
  Sender: FDA-Public Use
  Company Number: BR-002147023-NVSC2022BR246197

PATIENT
  Age: 34 Year
  Sex: Female
  Weight: 48 kg

DRUGS (5)
  1. CRIZANLIZUMAB [Suspect]
     Active Substance: CRIZANLIZUMAB
     Indication: Sickle cell anaemia with crisis
     Dosage: 5 MG/KG
     Route: 042
     Dates: end: 20220725
  2. HYDROXYUREA [Concomitant]
     Active Substance: HYDROXYUREA
     Indication: Product used for unknown indication
     Dosage: 1500 MG, QD
     Route: 065
     Dates: end: 202209
  3. ASPIRIN [Concomitant]
     Active Substance: ASPIRIN
     Indication: Product used for unknown indication
     Dosage: 100 MG, QD
     Route: 065
     Dates: end: 202209
  4. DEFERASIROX [Concomitant]
     Active Substance: DEFERASIROX
     Indication: Product used for unknown indication
     Dosage: 1500 MG, QD
     Route: 065
     Dates: end: 202209
  5. AMIODARONE HYDROCHLORIDE [Concomitant]
     Active Substance: AMIODARONE HYDROCHLORIDE
     Indication: Product used for unknown indication
     Dosage: 200 MG, QD
     Route: 065
     Dates: end: 202209

REACTIONS (7)
  - Death [Fatal]
  - Sickle cell anaemia with crisis [Unknown]
  - Arrhythmia [Unknown]
  - Sepsis [Unknown]
  - Cardiac failure [Unknown]
  - Sickle cell disease [Unknown]
  - Iron overload [Unknown]

NARRATIVE: CASE EVENT DATE: 20221026
